FAERS Safety Report 12629162 (Version 1)
Quarter: 2016Q3

REPORT INFORMATION
  Report Type: Spontaneous
  Country: US (occurrence: US)
  Receive Date: 20160808
  Receipt Date: 20160808
  Transmission Date: 20161109
  Serious: Yes (Death, Other)
  Sender: FDA-Public Use
  Company Number: US-AMGEN-USASP2016100884

PATIENT

DRUGS (14)
  1. PANITUMUMAB [Suspect]
     Active Substance: PANITUMUMAB
     Indication: COLORECTAL CANCER
     Route: 065
  2. REGORAFENIB [Suspect]
     Active Substance: REGORAFENIB
     Indication: COLORECTAL CANCER
     Dosage: 160 MG, QD
     Route: 065
     Dates: start: 201401
  3. FLUOROURACIL. [Suspect]
     Active Substance: FLUOROURACIL
     Indication: COLORECTAL CANCER
     Route: 065
  4. CAPECITABINE. [Suspect]
     Active Substance: CAPECITABINE
     Dosage: 1000 MG, TID
     Route: 048
  5. CETUXIMAB [Suspect]
     Active Substance: CETUXIMAB
     Indication: COLORECTAL CANCER
     Route: 065
  6. CAPECITABINE. [Suspect]
     Active Substance: CAPECITABINE
     Indication: COLORECTAL CANCER
     Dosage: UNK
     Route: 065
     Dates: start: 201401
  7. GSK1120212 [Suspect]
     Active Substance: TRAMETINIB
     Indication: COLORECTAL CANCER
     Route: 065
  8. IRINOTECAN [Suspect]
     Active Substance: IRINOTECAN
     Indication: COLORECTAL CANCER
     Route: 065
  9. REGORAFENIB [Suspect]
     Active Substance: REGORAFENIB
     Dosage: UNK
     Route: 065
  10. CALCIUM FOLINATE [Suspect]
     Active Substance: LEUCOVORIN CALCIUM
     Indication: COLORECTAL CANCER
     Route: 042
  11. OXALIPLATINE [Suspect]
     Active Substance: OXALIPLATIN
     Indication: COLORECTAL CANCER
     Route: 065
  12. BEVACIZUMAB [Suspect]
     Active Substance: BEVACIZUMAB
     Indication: COLORECTAL CANCER
     Route: 065
  13. GSK2118436 [Suspect]
     Active Substance: DABRAFENIB
     Indication: COLORECTAL CANCER
     Route: 065
  14. SORAFENIB [Suspect]
     Active Substance: SORAFENIB
     Indication: COLON CANCER
     Route: 065

REACTIONS (4)
  - Pneumonia [Fatal]
  - Pulmonary embolism [Fatal]
  - Colorectal cancer [Fatal]
  - Pulmonary haemorrhage [Fatal]
